FAERS Safety Report 9128044 (Version 1)
Quarter: 2013Q1

REPORT INFORMATION
  Report Type: Spontaneous
  Country: US (occurrence: US)
  Receive Date: 20130228
  Receipt Date: 20130228
  Transmission Date: 20140127
  Serious: No
  Sender: FDA-Public Use
  Company Number: US-PFIZER INC-2013071064

PATIENT
  Age: 68 Year
  Sex: Female
  Weight: 69.39 kg

DRUGS (6)
  1. GABAPENTIN [Suspect]
     Indication: NEURALGIA
     Dosage: UNK
     Dates: end: 2011
  2. AMLODIPINE [Concomitant]
     Indication: HYPERTENSION
     Dosage: 5 MG, UNK
  3. METOPROLOL [Concomitant]
     Indication: HYPERTENSION
     Dosage: 25 MG, UNK
  4. OMEPRAZOLE [Concomitant]
     Dosage: 20 MG, UNK
  5. BENAZEPRIL [Concomitant]
     Dosage: 10 MG, UNK
  6. CLOPIDOGREL [Concomitant]
     Dosage: 25 MG, UNK

REACTIONS (1)
  - Tinnitus [Not Recovered/Not Resolved]
